FAERS Safety Report 9099731 (Version 2)
Quarter: 2013Q2

REPORT INFORMATION
  Report Type: Spontaneous
  Country: US (occurrence: US)
  Receive Date: 20130214
  Receipt Date: 20130531
  Transmission Date: 20140414
  Serious: Yes (Hospitalization)
  Sender: FDA-Public Use
  Company Number: US-ELI_LILLY_AND_COMPANY-US201302002150

PATIENT
  Age: 67 Year
  Sex: Female
  Weight: 56.69 kg

DRUGS (4)
  1. FORTEO [Suspect]
     Indication: OSTEOPOROSIS
     Dosage: 20 UG, QD
     Dates: start: 201207
  2. FORTEO [Suspect]
     Dosage: 20 UG, QD
     Dates: end: 201301
  3. CIPROFLOXACIN [Concomitant]
  4. NITROFURANTOIN [Concomitant]

REACTIONS (7)
  - Ureteric cancer [Unknown]
  - Bladder cancer [Unknown]
  - Bacterial test positive [Unknown]
  - Renal disorder [Unknown]
  - Bronchitis [Unknown]
  - Back pain [Unknown]
  - Pain [Unknown]
